FAERS Safety Report 5691799-5 (Version None)
Quarter: 2008Q2

REPORT INFORMATION
  Report Type: 
  Country: None (occurrence: None)
  Receive Date: 20080402
  Receipt Date: 20080327
  Transmission Date: 20081010
  Serious: Yes (Other)
  Sender: FDA-Public Use
  Company Number: BR-ASTRAZENECA-2007UW26893

PATIENT
  Age: 59 Year
  Sex: Female
  Weight: 70 kg

DRUGS (5)
  1. ARIMIDEX [Suspect]
     Indication: METASTASES TO BONE
     Route: 048
     Dates: start: 20050101, end: 20070501
  2. TAMOXIFEN CITRATE [Suspect]
     Indication: BREAST CANCER
     Route: 048
     Dates: start: 19991101, end: 20041101
  3. PURAN T4 [Concomitant]
     Route: 048
     Dates: start: 19950101
  4. LORAX [Concomitant]
     Dates: start: 20070501
  5. NAZEDRON [Concomitant]
     Route: 048
     Dates: start: 20070501

REACTIONS (3)
  - ENDOMETRIAL HYPERTROPHY [None]
  - METASTASES TO BONE [None]
  - TUMOUR MARKER INCREASED [None]
